FAERS Safety Report 20337033 (Version 1)
Quarter: 2022Q1

REPORT INFORMATION
  Report Type: Report from Study
  Country: US (occurrence: US)
  Receive Date: 20220114
  Receipt Date: 20220114
  Transmission Date: 20220423
  Serious: Yes (Other)
  Sender: FDA-Public Use
  Company Number: US-PHARMACOVIGILANCE-US-KAD-22-00029

PATIENT

DRUGS (3)
  1. REZUROCK [Suspect]
     Active Substance: BELUMOSUDIL
     Indication: Product used for unknown indication
     Dosage: 200 MILLIGRAM, QD
     Dates: start: 20210902
  2. CARVEDILOL [Concomitant]
     Active Substance: CARVEDILOL
     Indication: Product used for unknown indication
     Dosage: 18.5 MILLIGRAM
  3. CARVEDILOL [Concomitant]
     Active Substance: CARVEDILOL
     Dosage: 25 MILLIGRAM

REACTIONS (3)
  - Pulmonary function test decreased [Unknown]
  - Disease progression [Unknown]
  - Product dose omission issue [Unknown]
